FAERS Safety Report 10649695 (Version 3)
Quarter: 2015Q1

REPORT INFORMATION
  Report Type: Report from Study
  Country: GB (occurrence: GB)
  Receive Date: 20141212
  Receipt Date: 20150213
  Transmission Date: 20150720
  Serious: Yes (Hospitalization, Other)
  Sender: FDA-Public Use
  Company Number: GB-GILEAD-2014-0125305

PATIENT
  Age: 68 Year
  Sex: Female
  Weight: 70.2 kg

DRUGS (25)
  1. IDELALISIB [Suspect]
     Active Substance: IDELALISIB
     Dosage: 150 MG, BID
     Route: 048
     Dates: start: 20141202, end: 20141202
  2. LOPERAMIDE [Concomitant]
     Active Substance: LOPERAMIDE
     Indication: DIARRHOEA
     Route: 048
     Dates: start: 20141126, end: 20141126
  3. COTRIMOXAZOLE [Concomitant]
     Active Substance: SULFAMETHOXAZOLE\TRIMETHOPRIM
     Indication: INFECTION PROPHYLAXIS
     Route: 048
     Dates: start: 20141114
  4. NITROFURANTOIN. [Concomitant]
     Active Substance: NITROFURANTOIN
     Indication: URINARY TRACT INFECTION
     Route: 048
     Dates: start: 20141030, end: 20141103
  5. PARACETAMOL [Concomitant]
     Active Substance: ACETAMINOPHEN
     Indication: ANALGESIC THERAPY
  6. IDELALISIB [Suspect]
     Active Substance: IDELALISIB
     Indication: CHRONIC LYMPHOCYTIC LEUKAEMIA
     Dosage: 150 MG, BID
     Route: 048
     Dates: start: 20141201, end: 20141201
  7. IDELALISIB [Suspect]
     Active Substance: IDELALISIB
     Dosage: 100 MG, BID
     Route: 048
     Dates: start: 20141210
  8. RITUXIMAB [Suspect]
     Active Substance: RITUXIMAB
     Dosage: 100 MG, QD
     Route: 042
     Dates: start: 20141111, end: 20141111
  9. METHYLPREDNISOLONE. [Concomitant]
     Active Substance: METHYLPREDNISOLONE
     Indication: PROPHYLAXIS
     Route: 042
     Dates: start: 20141111
  10. METOCLOPRAMIDE. [Concomitant]
     Active Substance: METOCLOPRAMIDE
     Indication: PROPHYLAXIS OF NAUSEA AND VOMITING
     Dosage: UNK
     Route: 042
     Dates: start: 20141111
  11. RAMIPRIL. [Concomitant]
     Active Substance: RAMIPRIL
     Indication: HYPERTENSION
     Route: 048
     Dates: start: 20140513
  12. PARACETAMOL [Concomitant]
     Active Substance: ACETAMINOPHEN
     Indication: PROPHYLAXIS
     Route: 048
     Dates: start: 20141111
  13. BENDAMUSTINE [Suspect]
     Active Substance: BENDAMUSTINE
     Indication: CHRONIC LYMPHOCYTIC LEUKAEMIA
     Dosage: 162 MG, QD
     Route: 042
     Dates: start: 20141112, end: 20141112
  14. BENDAMUSTINE [Suspect]
     Active Substance: BENDAMUSTINE
     Dosage: 162 MG, QD
     Route: 042
     Dates: start: 20150107, end: 20150107
  15. CHLORPHENIRAMINE                   /00072501/ [Concomitant]
     Active Substance: CHLORPHENIRAMINE
     Indication: PROPHYLAXIS
     Route: 042
     Dates: start: 20141111
  16. BENDAMUSTINE [Suspect]
     Active Substance: BENDAMUSTINE
     Dosage: 162 MG, QD
     Route: 042
     Dates: start: 20141210, end: 20141210
  17. RITUXIMAB [Suspect]
     Active Substance: RITUXIMAB
     Indication: CHRONIC LYMPHOCYTIC LEUKAEMIA
     Dosage: 575 MG, QD
     Route: 042
     Dates: start: 20141112, end: 20141112
  18. RITUXIMAB [Suspect]
     Active Substance: RITUXIMAB
     Dosage: 900 MG, QD
     Route: 042
     Dates: start: 20150107, end: 20150107
  19. DEXAMETHASONE. [Concomitant]
     Active Substance: DEXAMETHASONE
     Indication: ANTIEMETIC SUPPORTIVE CARE
     Route: 048
     Dates: start: 20141113
  20. METOCLOPRAMIDE. [Concomitant]
     Active Substance: METOCLOPRAMIDE
     Indication: ANTIEMETIC SUPPORTIVE CARE
     Dosage: UNK
     Route: 048
     Dates: start: 20141111
  21. IDELALISIB [Suspect]
     Active Substance: IDELALISIB
     Dosage: 150 MG, BID
     Route: 048
     Dates: start: 20141111, end: 20141126
  22. BENDAMUSTINE [Suspect]
     Active Substance: BENDAMUSTINE
     Dosage: 162 MG, QD
     Route: 042
     Dates: start: 20141111, end: 20141111
  23. BENDAMUSTINE [Suspect]
     Active Substance: BENDAMUSTINE
     Dosage: 162 MG, QD
     Route: 042
     Dates: start: 20150109, end: 20150109
  24. RITUXIMAB [Suspect]
     Active Substance: RITUXIMAB
     Dosage: 900 MG, QD
     Route: 042
     Dates: start: 20141210, end: 20141210
  25. ALLOPURINOL. [Concomitant]
     Active Substance: ALLOPURINOL
     Indication: PROPHYLAXIS
     Dosage: UNK
     Route: 048
     Dates: start: 20141111, end: 20141208

REACTIONS (1)
  - Syncope [Recovering/Resolving]

NARRATIVE: CASE EVENT DATE: 20141201
